FAERS Safety Report 16768061 (Version 1)
Quarter: 2019Q3

REPORT INFORMATION
  Report Type: Spontaneous
  Country: US (occurrence: US)
  Receive Date: 20190903
  Receipt Date: 20190903
  Transmission Date: 20191005
  Serious: Yes (Hospitalization)
  Sender: FDA-Public Use
  Company Number: US-JNJFOC-20190900049

PATIENT
  Age: 51 Year
  Sex: Female
  Weight: 115.32 kg

DRUGS (1)
  1. INVOKANA [Suspect]
     Active Substance: CANAGLIFLOZIN
     Indication: PRODUCT USED FOR UNKNOWN INDICATION
     Route: 048

REACTIONS (5)
  - Osteomyelitis [Unknown]
  - Gangrene [Unknown]
  - Sepsis [Unknown]
  - Diabetic foot infection [Unknown]
  - Foot amputation [Unknown]

NARRATIVE: CASE EVENT DATE: 20180409
